FAERS Safety Report 14106427 (Version 1)
Quarter: 2017Q4

REPORT INFORMATION
  Report Type: Spontaneous
  Country: US (occurrence: US)
  Receive Date: 20171018
  Receipt Date: 20171018
  Transmission Date: 20180321
  Serious: No
  Sender: FDA-Public Use
  Company Number: US-BAUSCH-BL-2016-021901

PATIENT
  Age: 9 Year
  Sex: Male

DRUGS (10)
  1. BUPROPION. [Suspect]
     Active Substance: BUPROPION
     Indication: AUTISM SPECTRUM DISORDER
     Route: 048
  2. MAGNESIUM [Concomitant]
     Active Substance: MAGNESIUM
     Indication: PRODUCT USED FOR UNKNOWN INDICATION
  3. VITAMIN C [Concomitant]
     Active Substance: ASCORBIC ACID
     Indication: PRODUCT USED FOR UNKNOWN INDICATION
  4. BUPROPION. [Suspect]
     Active Substance: BUPROPION
     Indication: INSOMNIA
     Route: 048
  5. DIGESTIVE ENZYMES [Concomitant]
     Active Substance: UNSPECIFIED INGREDIENT
     Indication: PRODUCT USED FOR UNKNOWN INDICATION
  6. VAYARIN [Concomitant]
     Active Substance: DOCONEXENT\ICOSAPENT\PHOSPHATIDYL SERINE
     Indication: PRODUCT USED FOR UNKNOWN INDICATION
  7. WELLBUTRIN [Suspect]
     Active Substance: BUPROPION HYDROCHLORIDE
     Indication: AUTISM SPECTRUM DISORDER
  8. MELATONIN [Concomitant]
     Active Substance: MELATONIN
     Indication: PRODUCT USED FOR UNKNOWN INDICATION
  9. WELLBUTRIN [Suspect]
     Active Substance: BUPROPION HYDROCHLORIDE
     Indication: INSOMNIA
     Route: 065
  10. CALCIUM [Concomitant]
     Active Substance: CALCIUM
     Indication: PRODUCT USED FOR UNKNOWN INDICATION

REACTIONS (5)
  - Drug ineffective [Unknown]
  - Gastric disorder [Not Recovered/Not Resolved]
  - Drug ineffective for unapproved indication [Unknown]
  - Anxiety [Unknown]
  - Off label use [Unknown]
